FAERS Safety Report 7277199-5 (Version None)
Quarter: 2011Q1

REPORT INFORMATION
  Report Type: 
  Country: None (occurrence: None)
  Receive Date: 20110202
  Receipt Date: 20110202
  Transmission Date: 20110831
  Serious: Yes (Other)
  Sender: FDA-Public Use
  Company Number: None

PATIENT
  Age: 49 Year
  Sex: Female
  Weight: 77.1115 kg

DRUGS (2)
  1. CLIMARA [Suspect]
     Indication: HYSTERECTOMY
     Dates: start: 20040715, end: 20110124
  2. NICODERM CQ [Suspect]
     Indication: SMOKING CESSATION THERAPY
     Dates: start: 20110102, end: 20110124

REACTIONS (3)
  - DRUG INTERACTION [None]
  - NIPPLE PAIN [None]
  - HYPERAESTHESIA [None]
